FAERS Safety Report 6713690-5 (Version None)
Quarter: 2010Q2

REPORT INFORMATION
  Report Type: 
  Country: None (occurrence: None)
  Receive Date: 20100503
  Receipt Date: 20100428
  Transmission Date: 20101027
  Serious: Yes (Life-Threatening, Hospitalization)
  Sender: FDA-Public Use
  Company Number: 2010AL002525

PATIENT
  Age: 84 Year
  Sex: Female

DRUGS (11)
  1. SPIRONOLACTONE [Suspect]
     Indication: HYPERTENSION
     Dosage: 25 MG; PO
     Route: 048
     Dates: start: 20091006, end: 20091126
  2. RAMIPRIL [Suspect]
     Indication: HYPERTENSION
     Dosage: 2.5 MG; P.O
     Route: 048
     Dates: start: 20091006, end: 20091126
  3. XIPAMIDE [Concomitant]
  4. TORASEMIDE [Concomitant]
  5. MELPERONE [Concomitant]
  6. MICTONORM [Concomitant]
  7. BIPERIDAN [Concomitant]
  8. ZOLPIDEM [Concomitant]
  9. PANTOPRAZOLE [Concomitant]
  10. CLOPIDOGREL [Concomitant]
  11. SIMVASTATIN [Concomitant]

REACTIONS (17)
  - ACUTE PRERENAL FAILURE [None]
  - ALTERED STATE OF CONSCIOUSNESS [None]
  - DEHYDRATION [None]
  - DISORIENTATION [None]
  - DISTURBANCE IN ATTENTION [None]
  - DRUG INTERACTION [None]
  - DRY SKIN [None]
  - ERYTHEMA [None]
  - FALL [None]
  - GENERAL PHYSICAL HEALTH DETERIORATION [None]
  - HYPOPHAGIA [None]
  - HYPOTENSION [None]
  - PRURITUS [None]
  - RENAL FAILURE ACUTE [None]
  - SOMNOLENCE [None]
  - TONGUE DRY [None]
  - URINARY TRACT INFECTION [None]
